FAERS Safety Report 8847343 (Version 2)
Quarter: 2012Q4

REPORT INFORMATION
  Report Type: 
  Country: US (occurrence: US)
  Receive Date: 20121018
  Receipt Date: 20121022
  Transmission Date: 20130627
  Serious: Yes (Hospitalization, Other)
  Sender: FDA-Public Use
  Company Number: US-ASTRAZENECA-2012SE78189

PATIENT
  Age: 38 Year
  Sex: Male

DRUGS (1)
  1. SEROQUEL [Suspect]
     Route: 048

REACTIONS (3)
  - Cerebral haemorrhage [Unknown]
  - Cerebrovascular accident [Unknown]
  - Accident [Unknown]
